FAERS Safety Report 24768608 (Version 1)
Quarter: 2024Q4

REPORT INFORMATION
  Report Type: Report from Study
  Country: CN (occurrence: CN)
  Receive Date: 20241224
  Receipt Date: 20241224
  Transmission Date: 20250115
  Serious: Yes (Other)
  Sender: ROCHE
  Company Number: CN-ROCHE-10000159964

PATIENT
  Age: 45 Year
  Sex: Male

DRUGS (8)
  1. RITUXIMAB [Suspect]
     Active Substance: RITUXIMAB
     Indication: Diffuse large B-cell lymphoma
     Route: 065
     Dates: start: 20241016
  2. RITUXIMAB [Suspect]
     Active Substance: RITUXIMAB
     Route: 065
     Dates: start: 20241106
  3. POLIVY [Suspect]
     Active Substance: POLATUZUMAB VEDOTIN-PIIQ
     Indication: Diffuse large B-cell lymphoma
     Route: 042
     Dates: start: 20241111
  4. EPIRUBICIN [Concomitant]
     Active Substance: EPIRUBICIN
     Indication: Diffuse large B-cell lymphoma
     Route: 065
     Dates: start: 20241020
  5. CYCLOPHOSPHAMIDE [Concomitant]
     Active Substance: CYCLOPHOSPHAMIDE
     Indication: Diffuse large B-cell lymphoma
     Route: 065
     Dates: start: 20241019
  6. VINCRISTINE [Concomitant]
     Active Substance: VINCRISTINE
     Indication: Diffuse large B-cell lymphoma
     Route: 065
     Dates: start: 20241018
  7. DECITABINE [Concomitant]
     Active Substance: DECITABINE
     Indication: Diffuse large B-cell lymphoma
     Route: 065
     Dates: start: 20241106
  8. METHYLPREDNISOLONE [Concomitant]
     Active Substance: METHYLPREDNISOLONE
     Indication: Diffuse large B-cell lymphoma
     Route: 065
     Dates: start: 20241012

REACTIONS (15)
  - Intra-abdominal fluid collection [Unknown]
  - Platelet count decreased [Unknown]
  - Hyperuricaemia [Unknown]
  - Hypoproteinaemia [Unknown]
  - Anaemia [Unknown]
  - Pyrexia [Unknown]
  - Infection [Unknown]
  - Myelosuppression [Unknown]
  - Septic shock [Unknown]
  - Upper respiratory tract infection [Recovering/Resolving]
  - White blood cell count decreased [Unknown]
  - Iron deficiency anaemia [Unknown]
  - Hypokalaemia [Unknown]
  - Hypertension [Unknown]
  - Coronary artery disease [Unknown]
